FAERS Safety Report 7823739-4 (Version None)
Quarter: 2011Q4

REPORT INFORMATION
  Report Type: 
  Country: None (occurrence: None)
  Receive Date: 20111019
  Receipt Date: 20111014
  Transmission Date: 20120403
  Serious: No
  Sender: FDA-Public Use
  Company Number: US-PFIZER INC-2011246596

PATIENT
  Sex: Female

DRUGS (10)
  1. HYDROCHLOROTHIAZIDE [Suspect]
     Dosage: 12.5 MG, ALTERNATE DAY
     Route: 048
  2. LISINOPRIL [Suspect]
     Dosage: 5 MG, 1X/DAY
     Route: 048
  3. PLAVIX [Suspect]
     Indication: TRANSIENT ISCHAEMIC ATTACK
     Dosage: 75 MG, 1X/DAY
     Route: 048
     Dates: start: 20110526
  4. NORVASC [Suspect]
     Dosage: 20 MG, UNK
     Dates: end: 20110101
  5. LISINOPRIL [Suspect]
     Dosage: 10 MG, 1X/DAY
     Route: 048
  6. HYDROCHLOROTHIAZIDE [Suspect]
     Dosage: 12.5 MG, 1X/DAY
     Route: 048
  7. PLAVIX [Suspect]
     Indication: MIGRAINE WITH AURA
  8. HYDROCHLOROTHIAZIDE [Suspect]
     Dosage: 25 MG, 1X/DAY
     Route: 048
  9. METFORMIN [Concomitant]
     Dosage: UNK
  10. HYDROCHLOROTHIAZIDE [Suspect]
     Dosage: 12.5 MG, AS NEEDED
     Route: 048

REACTIONS (5)
  - HEART RATE DECREASED [None]
  - GINGIVAL BLEEDING [None]
  - EPISTAXIS [None]
  - CONTUSION [None]
  - WEIGHT DECREASED [None]
